FAERS Safety Report 6278360-9 (Version None)
Quarter: 2009Q3

REPORT INFORMATION
  Report Type: 
  Country: None (occurrence: None)
  Receive Date: 20090722
  Receipt Date: 20090716
  Transmission Date: 20100115
  Serious: Yes (Other)
  Sender: FDA-Public Use
  Company Number: FR-WYE-G04061709

PATIENT
  Sex: Male

DRUGS (4)
  1. EFFEXOR [Suspect]
     Indication: DEPRESSION SUICIDAL
     Route: 048
     Dates: start: 20080519, end: 20080622
  2. EFFEXOR [Suspect]
     Route: 048
     Dates: start: 20080623
  3. ETHANOL [Suspect]
     Dosage: 120 G TOTAL DAILY (ESTIMATED)
     Route: 048
  4. SIMVASTATIN [Concomitant]
     Dosage: UNKNOWN
     Route: 048

REACTIONS (2)
  - HOMICIDE [None]
  - MALAISE [None]
